FAERS Safety Report 6740488-4 (Version None)
Quarter: 2010Q2

REPORT INFORMATION
  Report Type: 
  Country: None (occurrence: None)
  Receive Date: 20100525
  Receipt Date: 20100510
  Transmission Date: 20101027
  Serious: Yes (Other)
  Sender: FDA-Public Use
  Company Number: IL-BRISTOL-MYERS SQUIBB COMPANY-15073653

PATIENT
  Age: 46 Year
  Sex: Female

DRUGS (1)
  1. MITOMYCIN-C [Suspect]
     Indication: CONJUNCTIVAL PRIMARY ACQUIRED MELANOSIS
     Dosage: MITOMYCIN INJ.COURSES:2 OF .02%MMC AND 10 COURSES OF .04%MMC.CUMULATIVE PERIOD:168DAYS,CYC:12
     Route: 061

REACTIONS (1)
  - CORNEAL EPITHELIUM DEFECT [None]
